FAERS Safety Report 9676944 (Version 2)
Quarter: 2013Q4

REPORT INFORMATION
  Report Type: Report from Study
  Country: PL (occurrence: PL)
  Receive Date: 20131108
  Receipt Date: 20131125
  Transmission Date: 20140711
  Serious: Yes (Other)
  Sender: FDA-Public Use
  Company Number: PL-ROCHE-1301064

PATIENT
  Age: 52 Year
  Sex: Male

DRUGS (4)
  1. MABTHERA [Suspect]
     Indication: PRODUCT USED FOR UNKNOWN INDICATION
     Route: 065
  2. MABTHERA [Suspect]
     Route: 042
     Dates: start: 20131106, end: 20131106
  3. HYDROCORTISONE [Concomitant]
  4. CLEMASTIN [Concomitant]

REACTIONS (1)
  - Shock [Recovered/Resolved]
